FAERS Safety Report 11775341 (Version 5)
Quarter: 2016Q3

REPORT INFORMATION
  Report Type: Spontaneous
  Country: US (occurrence: US)
  Receive Date: 20151125
  Receipt Date: 20160913
  Transmission Date: 20161109
  Serious: No
  Sender: FDA-Public Use
  Company Number: US-ACTELION PHARMACEUTICALS US, INC.-A-US2015-115329

PATIENT
  Age: 36 Year
  Sex: Female

DRUGS (3)
  1. VELETRI [Suspect]
     Active Substance: EPOPROSTENOL
     Indication: PULMONARY ARTERIAL HYPERTENSION
     Dosage: 30 NG/KG, PER MIN
     Route: 042
     Dates: start: 20150321
  2. VELETRI [Suspect]
     Active Substance: EPOPROSTENOL
     Dosage: 8 NG/KG, PER MIN
     Route: 042
     Dates: start: 20150227
  3. SILDENAFIL. [Concomitant]
     Active Substance: SILDENAFIL

REACTIONS (21)
  - Nasal discomfort [Unknown]
  - Iron deficiency [Unknown]
  - Photosensitivity reaction [Unknown]
  - Flushing [Unknown]
  - Diarrhoea [Unknown]
  - Catheter site pain [Recovered/Resolved]
  - Catheter site erythema [Recovered/Resolved]
  - Culture wound positive [Recovered/Resolved]
  - Catheter site discharge [Unknown]
  - Catheter site rash [Unknown]
  - Gastrooesophageal reflux disease [Unknown]
  - Migraine [Unknown]
  - Nausea [Unknown]
  - Headache [Unknown]
  - Rash generalised [Unknown]
  - Staphylococcus test positive [Recovered/Resolved]
  - Blood culture negative [Recovered/Resolved]
  - Skin irritation [Recovered/Resolved]
  - Catheter site infection [Recovered/Resolved]
  - Seasonal allergy [Unknown]
  - Pain in jaw [Unknown]
